FAERS Safety Report 12980176 (Version 3)
Quarter: 2017Q4

REPORT INFORMATION
  Report Type: Spontaneous
  Country: JP (occurrence: JP)
  Receive Date: 20161128
  Receipt Date: 20171124
  Transmission Date: 20180320
  Serious: Yes (Death, Other)
  Sender: FDA-Public Use
  Company Number: PHJP2016JP034418

PATIENT
  Age: 49 Year
  Sex: Male
  Weight: 68 kg

DRUGS (2)
  1. VOTRIENT [Suspect]
     Active Substance: PAZOPANIB HYDROCHLORIDE
     Dosage: 600 MG, QD
     Route: 048
     Dates: start: 20161025
  2. VOTRIENT [Suspect]
     Active Substance: PAZOPANIB HYDROCHLORIDE
     Indication: SOFT TISSUE SARCOMA
     Dosage: 800 MG, QD
     Route: 048
     Dates: start: 20160118, end: 20161024

REACTIONS (21)
  - Drug-induced liver injury [Fatal]
  - Portal vein thrombosis [Fatal]
  - Inflammation [Fatal]
  - Depressed level of consciousness [Recovered/Resolved]
  - Abdominal pain [Fatal]
  - Renal impairment [Unknown]
  - Stomatitis [Unknown]
  - Jaundice [Fatal]
  - Dehydration [Unknown]
  - Pancreatic leak [Unknown]
  - Respiratory arrest [Fatal]
  - Depressed level of consciousness [Fatal]
  - Pancreatic cyst rupture [Unknown]
  - Pancreatitis chronic [Unknown]
  - Hepatic failure [Fatal]
  - Pancreatitis [Unknown]
  - Skin disorder [Unknown]
  - Skin depigmentation [Unknown]
  - Abdominal distension [Fatal]
  - Hepatic ischaemia [Fatal]
  - Pancreatic pseudocyst [Unknown]

NARRATIVE: CASE EVENT DATE: 201608
